FAERS Safety Report 18559973 (Version 1)
Quarter: 2020Q4

REPORT INFORMATION
  Report Type: Spontaneous
  Country: US (occurrence: US)
  Receive Date: 20201127
  Receipt Date: 20201127
  Transmission Date: 20210114
  Serious: No
  Sender: FDA-Public Use
  Company Number: None

PATIENT

DRUGS (2)
  1. COGENTIN [Suspect]
     Active Substance: BENZTROPINE MESYLATE
  2. EFFEXOR [Suspect]
     Active Substance: VENLAFAXINE HYDROCHLORIDE

REACTIONS (8)
  - Victim of crime [None]
  - Headache [None]
  - Abdominal discomfort [None]
  - Drug ineffective [None]
  - Nausea [None]
  - Vomiting [None]
  - Drug withdrawal syndrome [None]
  - Burnout syndrome [None]
